FAERS Safety Report 4506311-3 (Version None)
Quarter: 2004Q4

REPORT INFORMATION
  Report Type: 
  Country: None (occurrence: None)
  Receive Date: 20041025
  Receipt Date: 20040409
  Transmission Date: 20050328
  Serious: Yes (Hospitalization)
  Sender: FDA-Public Use
  Company Number: US-JNJFOC-20031102770

PATIENT
  Age: 66 Year
  Sex: Male
  Weight: 97.0698 kg

DRUGS (3)
  1. REMICADE [Suspect]
     Indication: RHEUMATOID ARTHRITIS
     Dosage: INTRAVENOUS;  GIVEN OVER 3 HOURS;  GIVEN OVER 3 HOURS
     Route: 042
     Dates: start: 20031006, end: 20031006
  2. REMICADE [Suspect]
     Indication: RHEUMATOID ARTHRITIS
     Dosage: INTRAVENOUS;  GIVEN OVER 3 HOURS;  GIVEN OVER 3 HOURS
     Route: 042
     Dates: start: 20031020, end: 20031020
  3. METHOTREXATE [Concomitant]

REACTIONS (4)
  - CONDITION AGGRAVATED [None]
  - PNEUMONIA [None]
  - RHEUMATOID ARTHRITIS [None]
  - UPPER RESPIRATORY TRACT INFECTION [None]
